FAERS Safety Report 4318919-9 (Version None)
Quarter: 2004Q1

REPORT INFORMATION
  Report Type: 
  Country: None (occurrence: None)
  Receive Date: 20040318
  Receipt Date: 20030919
  Transmission Date: 20041129
  Serious: No
  Sender: FDA-Public Use
  Company Number: US-BRISTOL-MYERS SQUIBB COMPANY-12397485

PATIENT
  Sex: Female

DRUGS (1)
  1. PARAPLATIN AQ [Suspect]
     Route: 042
     Dates: start: 20030918, end: 20030918

REACTIONS (1)
  - HYPERSENSITIVITY [None]
